FAERS Safety Report 10144127 (Version 1)
Quarter: 2014Q2

REPORT INFORMATION
  Report Type: Spontaneous
  Country: US (occurrence: US)
  Receive Date: 20140430
  Receipt Date: 20140430
  Transmission Date: 20141212
  Serious: Yes (Other)
  Sender: FDA-Public Use
  Company Number: US-ACTAVIS-2014-08428

PATIENT
  Age: 88 Year
  Sex: Female

DRUGS (3)
  1. FENTANYL-25 (WATSON LABORATORIES) [Suspect]
     Indication: PAIN
     Dosage: 25 MCG/HR, SINGLE
     Route: 062
     Dates: start: 20140414, end: 20140415
  2. METOPROLOL [Concomitant]
     Indication: BLOOD PRESSURE
     Dosage: 1 DF, BID
     Route: 048
  3. THYROID [Concomitant]
     Indication: HYPOTHYROIDISM
     Dosage: 1 DF, DAILY
     Route: 048

REACTIONS (3)
  - Memory impairment [Recovering/Resolving]
  - Abdominal discomfort [Recovering/Resolving]
  - Head discomfort [Recovering/Resolving]
